FAERS Safety Report 25888449 (Version 2)
Quarter: 2025Q4

REPORT INFORMATION
  Report Type: Spontaneous
  Country: CA (occurrence: CA)
  Receive Date: 20251007
  Receipt Date: 20251010
  Transmission Date: 20260117
  Serious: Yes (Other)
  Sender: BAXTER
  Company Number: CA-BAXTER-2025BAX021261

PATIENT
  Age: 70 Year
  Sex: Male

DRUGS (3)
  1. TISSEEL (FACTOR XIII CONCENTRATE (HUMAN)\FIBRINOGEN HUMAN\THROMBIN HUM [Suspect]
     Active Substance: APROTININ\CALCIUM CHLORIDE\FACTOR XIII CONCENTRATE (HUMAN)\FIBRINOGEN HUMAN\THROMBIN
     Indication: Craniotomy
     Dosage: UNK
     Route: 065
     Dates: start: 20250703, end: 20250703
  2. THROMBIN [Suspect]
     Active Substance: THROMBIN
     Indication: Craniotomy
     Dosage: UNK
     Route: 065
     Dates: start: 20250703, end: 20250703
  3. THROMBIN [Suspect]
     Active Substance: THROMBIN
     Dosage: UNK
     Route: 065
     Dates: start: 20250703, end: 20250703

REACTIONS (2)
  - Hepatitis E [Recovered/Resolved]
  - Hepatic enzyme increased [Unknown]

NARRATIVE: CASE EVENT DATE: 20250715
